FAERS Safety Report 23646983 (Version 2)
Quarter: 2025Q3

REPORT INFORMATION
  Report Type: Spontaneous
  Country: GB (occurrence: GB)
  Receive Date: 20240319
  Receipt Date: 20250816
  Transmission Date: 20251021
  Serious: Yes (Life-Threatening, Hospitalization, Other)
  Sender: ACCORD
  Company Number: GB-Accord-413424

PATIENT
  Age: 48 Year
  Sex: Female

DRUGS (4)
  1. MYCOPHENOLATE MOFETIL [Suspect]
     Active Substance: MYCOPHENOLATE MOFETIL
     Indication: Immunosuppressant drug therapy
  2. PREDNISOLONE [Suspect]
     Active Substance: PREDNISOLONE
     Indication: Immunosuppressant drug therapy
  3. AZATHIOPRINE [Suspect]
     Active Substance: AZATHIOPRINE
     Indication: Immunosuppressant drug therapy
  4. CYCLOSPORINE [Suspect]
     Active Substance: CYCLOSPORINE
     Indication: Immunosuppressant drug therapy

REACTIONS (3)
  - Pneumocystis jirovecii pneumonia [Recovering/Resolving]
  - Hypercalcaemia [Recovered/Resolved]
  - Acute kidney injury [Recovering/Resolving]
